FAERS Safety Report 9005624 (Version 2)
Quarter: 2013Q2

REPORT INFORMATION
  Report Type: Spontaneous
  Country: US (occurrence: US)
  Receive Date: 20130109
  Receipt Date: 20130625
  Transmission Date: 20140414
  Serious: Yes (Hospitalization, Other)
  Sender: FDA-Public Use
  Company Number: US-009507513-1301USA002314

PATIENT
  Sex: Female
  Weight: 79.91 kg

DRUGS (7)
  1. FOSAMAX [Suspect]
     Indication: OSTEOPOROSIS
     Dosage: 70 MG, UNK
     Route: 048
     Dates: start: 200002, end: 20081016
  2. ASCORBIC ACID [Concomitant]
     Dosage: 1 DF, QD
  3. VITAMINS (UNSPECIFIED) [Concomitant]
     Dosage: 1 DF, QD
  4. MAGNESIUM (UNSPECIFIED) [Concomitant]
     Dosage: 1 DF, QD
  5. OMEGA-3 MARINE TRIGLYCERIDES [Concomitant]
     Dosage: 1 DF, QD
  6. CYANOCOBALAMIN [Concomitant]
     Dosage: 1 DF, QD
  7. DARVOCET-N [Concomitant]
     Indication: FIBROMYALGIA

REACTIONS (12)
  - Femur fracture [Recovering/Resolving]
  - Intramedullary rod insertion [Unknown]
  - Vitamin D deficiency [Unknown]
  - Hypertension [Unknown]
  - Hyperlipidaemia [Unknown]
  - Mitral valve prolapse [Unknown]
  - Peritonsillar abscess [Recovered/Resolved]
  - Adverse drug reaction [Unknown]
  - Hyperglycaemia [Unknown]
  - Cerumen impaction [Recovered/Resolved]
  - Osteoarthritis [Unknown]
  - Cardiac disorder [Unknown]
